FAERS Safety Report 5575062-9 (Version None)
Quarter: 2007Q4

REPORT INFORMATION
  Report Type: 
  Country: None (occurrence: None)
  Receive Date: 20071221
  Receipt Date: 20071221
  Transmission Date: 20080405
  Serious: Yes (Other)
  Sender: FDA-Public Use
  Company Number: None

PATIENT
  Age: 57 Year
  Sex: Male
  Weight: 86.1834 kg

DRUGS (1)
  1. MIRAPEX [Suspect]
     Indication: PARKINSON'S DISEASE
     Dosage: 1 TABLET   3X  DAILY  PO
     Route: 048
     Dates: start: 20030301, end: 20071227

REACTIONS (3)
  - ECONOMIC PROBLEM [None]
  - PARAPHILIA [None]
  - PATHOLOGICAL GAMBLING [None]
